FAERS Safety Report 14773922 (Version 5)
Quarter: 2020Q3

REPORT INFORMATION
  Report Type: Spontaneous
  Country: US (occurrence: US)
  Receive Date: 20180418
  Receipt Date: 20200929
  Transmission Date: 20201102
  Serious: Yes (Other)
  Sender: FDA-Public Use
  Company Number: US-ASTRAZENECA-2018SE49317

PATIENT
  Age: 59 Year
  Sex: Male
  Weight: 93 kg

DRUGS (41)
  1. PRILOSEC [Suspect]
     Active Substance: OMEPRAZOLE MAGNESIUM
     Indication: GASTROOESOPHAGEAL REFLUX DISEASE
     Dosage: GENERIC
     Route: 065
  2. VIMOVO [Suspect]
     Active Substance: ESOMEPRAZOLE MAGNESIUM\NAPROXEN
     Route: 065
     Dates: start: 201401, end: 201601
  3. NICOTINE. [Concomitant]
     Active Substance: NICOTINE
  4. AMLODIPINE [Concomitant]
     Active Substance: AMLODIPINE BESYLATE
     Dates: start: 20140216, end: 20150616
  5. CARISOPRODOL. [Concomitant]
     Active Substance: CARISOPRODOL
  6. TUMS [Concomitant]
     Active Substance: CALCIUM CARBONATE
     Dates: start: 2014
  7. DEXILANT [Suspect]
     Active Substance: DEXLANSOPRAZOLE
     Route: 065
     Dates: start: 201401, end: 201601
  8. PROTONIX [Suspect]
     Active Substance: PANTOPRAZOLE SODIUM
     Indication: GASTROOESOPHAGEAL REFLUX DISEASE
     Route: 065
     Dates: start: 201401, end: 201601
  9. AZITHROMYCIN ANHYDROUS. [Concomitant]
     Active Substance: AZITHROMYCIN ANHYDROUS
     Dates: start: 20140216, end: 20141122
  10. BENZTROPINE. [Concomitant]
     Active Substance: BENZTROPINE
  11. GABAPENTIN. [Concomitant]
     Active Substance: GABAPENTIN
     Dates: start: 20151215, end: 20160127
  12. PRILOSEC [Suspect]
     Active Substance: OMEPRAZOLE MAGNESIUM
     Indication: GASTROOESOPHAGEAL REFLUX DISEASE
     Route: 048
     Dates: start: 201401, end: 201601
  13. PRILOSEC [Suspect]
     Active Substance: OMEPRAZOLE MAGNESIUM
     Indication: GASTROOESOPHAGEAL REFLUX DISEASE
     Route: 048
     Dates: start: 201403, end: 201502
  14. PRILOSEC [Suspect]
     Active Substance: OMEPRAZOLE MAGNESIUM
     Indication: GASTROOESOPHAGEAL REFLUX DISEASE
     Route: 048
     Dates: start: 20140101, end: 20171231
  15. PRILOSEC [Suspect]
     Active Substance: OMEPRAZOLE MAGNESIUM
     Indication: GASTROOESOPHAGEAL REFLUX DISEASE
     Route: 048
     Dates: start: 20140320, end: 20150211
  16. PREVACID 24 HR [Suspect]
     Active Substance: LANSOPRAZOLE
     Route: 065
     Dates: start: 201401, end: 201601
  17. TRAMADOL. [Concomitant]
     Active Substance: TRAMADOL
  18. ACIPHEX [Suspect]
     Active Substance: RABEPRAZOLE SODIUM
     Route: 065
     Dates: start: 201401, end: 201601
  19. LISINOPRIL. [Concomitant]
     Active Substance: LISINOPRIL
     Dates: start: 20140322, end: 20160903
  20. TRAZODONE [Concomitant]
     Active Substance: TRAZODONE HYDROCHLORIDE
     Dates: start: 20150424, end: 20150610
  21. GUIAFENESIN?CODEINE [Concomitant]
  22. ALLOPURINOL. [Concomitant]
     Active Substance: ALLOPURINOL
  23. PROMETHAZINE [Concomitant]
     Active Substance: PROMETHAZINE HYDROCHLORIDE
  24. HYDROCHLOROTHIAZIDE. [Concomitant]
     Active Substance: HYDROCHLOROTHIAZIDE
     Dates: start: 20140322, end: 20150509
  25. FLOVENT [Concomitant]
     Active Substance: FLUTICASONE PROPIONATE
     Dates: start: 20140401, end: 20160630
  26. CIPROFLOXACIN. [Concomitant]
     Active Substance: CIPROFLOXACIN
  27. WELLBUTRIN [Concomitant]
     Active Substance: BUPROPION HYDROCHLORIDE
  28. NEXIUM 24HR [Suspect]
     Active Substance: ESOMEPRAZOLE MAGNESIUM
     Route: 048
     Dates: start: 201401, end: 201601
  29. PREVACID [Suspect]
     Active Substance: LANSOPRAZOLE
     Route: 065
     Dates: start: 201401, end: 201601
  30. BUPROPION. [Concomitant]
     Active Substance: BUPROPION
     Dates: start: 20140617, end: 20160606
  31. NEXIUM [Suspect]
     Active Substance: ESOMEPRAZOLE MAGNESIUM
     Route: 048
     Dates: start: 201401, end: 201601
  32. NEXIUM 24HR [Suspect]
     Active Substance: ESOMEPRAZOLE MAGNESIUM
     Route: 048
     Dates: start: 2010, end: 201207
  33. NASONEX [Concomitant]
     Active Substance: MOMETASONE FUROATE
  34. PRILOSEC OTC [Suspect]
     Active Substance: OMEPRAZOLE MAGNESIUM
     Indication: GASTROOESOPHAGEAL REFLUX DISEASE
     Route: 048
     Dates: start: 201403, end: 201502
  35. PRILOSEC OTC [Suspect]
     Active Substance: OMEPRAZOLE MAGNESIUM
     Indication: GASTROOESOPHAGEAL REFLUX DISEASE
     Route: 048
     Dates: start: 20140101, end: 20171231
  36. PRILOSEC OTC [Suspect]
     Active Substance: OMEPRAZOLE MAGNESIUM
     Indication: GASTROOESOPHAGEAL REFLUX DISEASE
     Route: 048
     Dates: start: 20140320, end: 20150211
  37. PROTONIX [Suspect]
     Active Substance: PANTOPRAZOLE SODIUM
     Indication: GASTROOESOPHAGEAL REFLUX DISEASE
     Dosage: GENERIC
     Route: 065
     Dates: start: 20151130, end: 20160910
  38. PREDNISONE. [Concomitant]
     Active Substance: PREDNISONE
  39. ZYPREXA [Concomitant]
     Active Substance: OLANZAPINE
  40. FLOMAX [Concomitant]
     Active Substance: TAMSULOSIN HYDROCHLORIDE
  41. CEPHALEXIN. [Concomitant]
     Active Substance: CEPHALEXIN

REACTIONS (2)
  - Chronic kidney disease [Not Recovered/Not Resolved]
  - Renal injury [Not Recovered/Not Resolved]

NARRATIVE: CASE EVENT DATE: 2014
